FAERS Safety Report 15390234 (Version 5)
Quarter: 2019Q4

REPORT INFORMATION
  Report Type: Report from Study
  Country: US (occurrence: US)
  Receive Date: 20180917
  Receipt Date: 20191202
  Transmission Date: 20200122
  Serious: Yes (Hospitalization, Other)
  Sender: FDA-Public Use
  Company Number: PHEH2018US037414

PATIENT
  Sex: Male

DRUGS (1)
  1. AFINITOR [Suspect]
     Active Substance: EVEROLIMUS
     Indication: ASTROCYTOMA, LOW GRADE
     Dosage: 2.5 MG, QD
     Route: 048
     Dates: start: 20121106

REACTIONS (12)
  - Shunt infection [Unknown]
  - Seizure [Unknown]
  - Anaemia [Unknown]
  - Alopecia [Unknown]
  - Blood count abnormal [Unknown]
  - Enterocolitis viral [Unknown]
  - Blood potassium increased [Recovering/Resolving]
  - Infection [Unknown]
  - Personality change [Unknown]
  - Oesophageal disorder [Unknown]
  - Pyrexia [Unknown]
  - Ulcer [Unknown]
